FAERS Safety Report 9596774 (Version 1)
Quarter: 2013Q4

REPORT INFORMATION
  Report Type: Report from Study
  Country: PE (occurrence: PE)
  Receive Date: 20131004
  Receipt Date: 20131004
  Transmission Date: 20140711
  Serious: Yes (Death)
  Sender: FDA-Public Use
  Company Number: PE-ASTRAZENECA-2013SE72917

PATIENT
  Age: 33630 Day
  Sex: Female

DRUGS (1)
  1. BETALOC ZOK [Suspect]
     Indication: ANGINA PECTORIS
     Route: 048
     Dates: start: 20130504

REACTIONS (1)
  - Death [Fatal]
